FAERS Safety Report 16313503 (Version 3)
Quarter: 2019Q2

REPORT INFORMATION
  Report Type: Report from Study
  Country: TH (occurrence: TH)
  Receive Date: 20190515
  Receipt Date: 20190612
  Transmission Date: 20190711
  Serious: Yes (Hospitalization)
  Sender: FDA-Public Use
  Company Number: TH-ROCHE-2315382

PATIENT
  Age: 59 Year
  Sex: Female
  Weight: 43.5 kg

DRUGS (22)
  1. FERROUS SULFATE. [Concomitant]
     Active Substance: FERROUS SULFATE
     Indication: ANAEMIA
     Route: 048
     Dates: start: 20190314, end: 20190423
  2. PERTUZUMAB. [Suspect]
     Active Substance: PERTUZUMAB
     Indication: HER-2 POSITIVE BREAST CANCER
     Dosage: LOADING DOSE
     Route: 042
     Dates: start: 20190221
  3. DOCETAXEL. [Suspect]
     Active Substance: DOCETAXEL
     Indication: HER-2 POSITIVE BREAST CANCER
     Dosage: DOSE OF LAST STUDY DRUG E ADMINISTERED PRIOR TO SAE ONSET  101 MG ON 24/APR/2019 AT 11:00
     Route: 042
     Dates: start: 20190221
  4. METOPROLOL. [Concomitant]
     Active Substance: METOPROLOL
     Indication: HYPERTENSION
     Route: 048
  5. RANITIDINE. [Concomitant]
     Active Substance: RANITIDINE
     Dosage: PRE MEDICATION,CHILL
     Route: 042
     Dates: start: 20190221, end: 20190424
  6. CHLORPHENIRAMINE [CHLORPHENAMINE] [Concomitant]
     Active Substance: CHLORPHENIRAMINE
     Dosage: 1 TABLET
     Route: 048
     Dates: start: 20190221, end: 20190503
  7. HYDROXYZINE [Concomitant]
     Active Substance: HYDROXYZINE HYDROCHLORIDE
     Indication: RASH
     Route: 048
     Dates: start: 20190417, end: 20190521
  8. TRASTUZUMAB. [Suspect]
     Active Substance: TRASTUZUMAB
     Dosage: DOSE OF LAST STUDY DRUG C ADMINISTERED PRIOR TO SAE ONSET 272 MG ON 24/APR/2019 AT 9:45?MAINTENANCE
     Route: 042
  9. DOXORUBICIN [Suspect]
     Active Substance: DOXORUBICIN
     Indication: HER-2 POSITIVE BREAST CANCER
     Dosage: DOSE OF LAST STUDY DRUG A ADMINISTERED PRIOR TO SAE ONSET 84 MG 25/JAN/2019 AT 4:10
     Route: 042
     Dates: start: 20181119
  10. CYCLOPHOSPHAMIDE. [Suspect]
     Active Substance: CYCLOPHOSPHAMIDE
     Indication: HER-2 POSITIVE BREAST CANCER
     Dosage: DOSE OF LAST STUDY DRUG B ADMINISTERED PRIOR TO SAE ONSET 840 MG ON 25/JAN/2019 AT 4:25
     Route: 042
     Dates: start: 20181119
  11. CHLORPHENIRAMINE [CHLORPHENAMINE] [Concomitant]
     Active Substance: CHLORPHENIRAMINE
     Indication: RASH
     Route: 042
     Dates: start: 20190417, end: 20190417
  12. ONDANSETRON [Concomitant]
     Active Substance: ONDANSETRON
     Dosage: PRE MEDICATION
     Route: 042
     Dates: start: 20190221, end: 20190424
  13. DEXAMETHASONE. [Concomitant]
     Active Substance: DEXAMETHASONE
     Dosage: FOR PRE MEDICATION, CHILL
     Route: 042
     Dates: start: 20190221, end: 20190424
  14. CHLORPHENIRAMINE [CHLORPHENAMINE] [Concomitant]
     Active Substance: CHLORPHENIRAMINE
     Dosage: PRE MEDICATIOM, CHILL
     Route: 042
     Dates: start: 20190221
  15. CHLORPHENIRAMINE [CHLORPHENAMINE] [Concomitant]
     Active Substance: CHLORPHENIRAMINE
     Dosage: ANTIHISTAMINE
     Route: 048
     Dates: start: 20190221
  16. PERTUZUMAB. [Suspect]
     Active Substance: PERTUZUMAB
     Dosage: DOSE OF LAST STUDY DRUG D ADMINISTERED PRIOR TO SAE ONSET 420 MG ON 24/APR/2019 AT 8:40?MAINTENANCE
     Route: 042
  17. ONDANSETRON [Concomitant]
     Active Substance: ONDANSETRON
     Dosage: ANTIEMETIC
     Route: 048
     Dates: start: 20181119, end: 20190429
  18. ENALAPRIL [Concomitant]
     Active Substance: ENALAPRIL
     Indication: HYPERTENSION
     Route: 048
  19. CHLORPHENIRAMINE [CHLORPHENAMINE] [Concomitant]
     Active Substance: CHLORPHENIRAMINE
     Route: 042
     Dates: start: 20190221, end: 20190424
  20. DEXAMETHASONE. [Concomitant]
     Active Substance: DEXAMETHASONE
     Dosage: 1 MG/ML
     Route: 048
     Dates: start: 20190221, end: 20190426
  21. POTASSIUM CHLORIDE. [Concomitant]
     Active Substance: POTASSIUM CHLORIDE
     Indication: HYPOKALAEMIA
     Route: 048
     Dates: start: 20190314, end: 20190412
  22. TRASTUZUMAB. [Suspect]
     Active Substance: TRASTUZUMAB
     Indication: HER-2 POSITIVE BREAST CANCER
     Dosage: LOADING DOSE
     Route: 042
     Dates: start: 20190221

REACTIONS (1)
  - Pneumonia [Recovered/Resolved]

NARRATIVE: CASE EVENT DATE: 20190503
